FAERS Safety Report 8839670 (Version 1)
Quarter: 2012Q4

REPORT INFORMATION
  Report Type: 
  Country: PK (occurrence: PK)
  Receive Date: 20121015
  Receipt Date: 20121015
  Transmission Date: 20130627
  Serious: Yes (Hospitalization)
  Sender: FDA-Public Use
  Company Number: PHHY2012PK091073

PATIENT
  Age: 68 Year
  Sex: Female

DRUGS (3)
  1. ACLASTA [Suspect]
     Indication: OSTEOPOROSIS
     Dosage: 5 mg/ 100 ml once a year
     Route: 042
  2. ACLASTA [Suspect]
     Dosage: 5 mg/ 100 ml once a year
     Route: 042
     Dates: start: 20111031
  3. CALCIUM [Concomitant]
     Indication: OSTEOPOROSIS
     Dosage: Once a daily
     Route: 048
     Dates: start: 2010

REACTIONS (1)
  - Femur fracture [Unknown]
